FAERS Safety Report 8492698-6 (Version None)
Quarter: 2012Q3

REPORT INFORMATION
  Report Type: 
  Country: None (occurrence: None)
  Receive Date: 20120706
  Receipt Date: 20120629
  Transmission Date: 20120928
  Serious: Yes (Other)
  Sender: FDA-Public Use
  Company Number: BR-PFIZER INC-2012158141

PATIENT
  Age: 82 Year
  Sex: Male

DRUGS (1)
  1. CARDURA [Suspect]
     Indication: URINARY RETENTION
     Dosage: UNK
     Route: 048
     Dates: start: 20020101

REACTIONS (1)
  - DEMENTIA [None]
